FAERS Safety Report 4412930-5 (Version None)
Quarter: 2004Q3

REPORT INFORMATION
  Report Type: 
  Country: None (occurrence: None)
  Receive Date: 20040728
  Receipt Date: 20040716
  Transmission Date: 20050211
  Serious: Yes (Death)
  Sender: FDA-Public Use
  Company Number: 2004S1002095

PATIENT
  Age: 57 Year
  Sex: Male

DRUGS (10)
  1. CLOZAPINE [Suspect]
     Dosage: 700MG Q HS ORAL
     Route: 048
     Dates: start: 20010601
  2. LORAZEPAM [Concomitant]
  3. FENTANYL [Concomitant]
  4. OXYCODONE HCL [Concomitant]
  5. HYDROCODONE/ACETAMINOPHEN [Concomitant]
  6. BUPROPION HCL [Concomitant]
  7. ALBUTEROL, FLUTICASONE [Concomitant]
  8. LEVOTHYROXINE SODIUM [Concomitant]
  9. LACTULOSE [Concomitant]
  10. LANSOPRAZOLE [Concomitant]

REACTIONS (1)
  - CARCINOMA [None]
